FAERS Safety Report 5939652-3 (Version None)
Quarter: 2008Q4

REPORT INFORMATION
  Report Type: 
  Country: None (occurrence: None)
  Receive Date: 20081030
  Receipt Date: 20081030
  Transmission Date: 20090506
  Serious: Yes (Life-Threatening, Hospitalization)
  Sender: FDA-Public Use
  Company Number: None

PATIENT
  Sex: Male
  Weight: 72.5755 kg

DRUGS (3)
  1. ANTABUSE [Suspect]
     Indication: ALCOHOLISM
     Dosage: 500 MG DAILY MON, WED, FRIDAY PO
     Route: 048
     Dates: start: 20080501, end: 20081006
  2. PROZAC [Concomitant]
  3. CYPROHEPTADINE HCL [Concomitant]

REACTIONS (19)
  - ACIDOSIS [None]
  - COMA [None]
  - DEPRESSED LEVEL OF CONSCIOUSNESS [None]
  - DERMATITIS EXFOLIATIVE [None]
  - DISSEMINATED INTRAVASCULAR COAGULATION [None]
  - EXFOLIATIVE RASH [None]
  - HEART RATE INCREASED [None]
  - HEPATIC FAILURE [None]
  - HYPERBILIRUBINAEMIA [None]
  - HYPERKALAEMIA [None]
  - HYPOTENSION [None]
  - MENTAL STATUS CHANGES [None]
  - MULTI-ORGAN DISORDER [None]
  - RASH [None]
  - RENAL FAILURE ACUTE [None]
  - RESPIRATORY DISTRESS [None]
  - RESPIRATORY FAILURE [None]
  - SEPSIS [None]
  - SHOCK [None]
